FAERS Safety Report 4789248-4 (Version None)
Quarter: 2005Q3

REPORT INFORMATION
  Report Type: 
  Country: None (occurrence: None)
  Receive Date: 20050929
  Receipt Date: 20050802
  Transmission Date: 20060218
  Serious: No
  Sender: FDA-Public Use
  Company Number: 05P-163-0307348-00

PATIENT
  Age: 75 Year
  Sex: Female
  Weight: 77.1115 kg

DRUGS (10)
  1. HUMIRA [Suspect]
     Indication: RHEUMATOID ARTHRITIS
     Dosage: 40 MG, 1 IN 1 WK, SUBCUTANEOUS
     Route: 058
     Dates: start: 20030101
  2. PREDNISONE [Concomitant]
  3. THYROID TAB [Concomitant]
  4. LEFLUNOMIDE [Concomitant]
  5. CARBAMAZEPINE [Concomitant]
  6. LORAZEPAM [Concomitant]
  7. MULTI-VITAMINS [Concomitant]
  8. POTASSIUM [Concomitant]
  9. FUROSEMIDE [Concomitant]
  10. METHYLCELLULOSE [Concomitant]

REACTIONS (2)
  - NASOPHARYNGITIS [None]
  - PYREXIA [None]
